FAERS Safety Report 8356887-3 (Version None)
Quarter: 2012Q2

REPORT INFORMATION
  Report Type: 
  Country: None (occurrence: None)
  Receive Date: 20120514
  Receipt Date: 20090820
  Transmission Date: 20120825
  Serious: No
  Sender: FDA-Public Use
  Company Number: US-TEVA-2009009850

PATIENT
  Age: 59 Year
  Sex: Male
  Weight: 81.72 kg

DRUGS (3)
  1. TREANDA [Suspect]
     Indication: CHRONIC LYMPHOCYTIC LEUKAEMIA
     Route: 042
     Dates: start: 20090706
  2. ALLOPURINOL [Concomitant]
  3. RITUXAN [Concomitant]
     Indication: CHRONIC LYMPHOCYTIC LEUKAEMIA
     Dates: start: 20090706

REACTIONS (9)
  - ABDOMINAL DISCOMFORT [None]
  - DYSPNOEA [None]
  - PHLEBITIS [None]
  - DIZZINESS [None]
  - MUSCLE SPASMS [None]
  - HYPOPHAGIA [None]
  - HEART RATE INCREASED [None]
  - HOT FLUSH [None]
  - NAUSEA [None]
